FAERS Safety Report 5936137-5 (Version None)
Quarter: 2008Q4

REPORT INFORMATION
  Report Type: 
  Country: None (occurrence: None)
  Receive Date: 20081030
  Receipt Date: 20081027
  Transmission Date: 20090506
  Serious: Yes (Other)
  Sender: FDA-Public Use
  Company Number: US-ASTRAZENECA-2008UW24046

PATIENT
  Age: 34 Year
  Sex: Female

DRUGS (3)
  1. ENTOCORT EC [Suspect]
     Indication: CROHN'S DISEASE
     Dosage: 9 MG
     Route: 048
  2. ENTOCORT EC [Suspect]
     Indication: ENTEROCOLITIS
     Dosage: 9 MG
     Route: 048
  3. VITAMIN TAB [Concomitant]

REACTIONS (1)
  - CONVULSION [None]
